FAERS Safety Report 8957717 (Version 2)
Quarter: 2013Q1

REPORT INFORMATION
  Report Type: Spontaneous
  Country: US (occurrence: US)
  Receive Date: 20121211
  Receipt Date: 20130108
  Transmission Date: 20140127
  Serious: Yes (Life-Threatening, Hospitalization, Disabling, Other)
  Sender: FDA-Public Use
  Company Number: US-CELGENEUS-163-21880-12120580

PATIENT
  Age: 66 Year
  Sex: Female
  Weight: 130 kg

DRUGS (29)
  1. REVLIMID [Suspect]
     Indication: PLASMA CELL MYELOMA
     Dosage: 15 MILLIGRAM
     Route: 048
     Dates: start: 20080507
  2. REVLIMID [Suspect]
     Dosage: 25 MILLIGRAM
     Route: 048
     Dates: end: 200912
  3. REVLIMID [Suspect]
     Dosage: 10 MILLIGRAM
     Route: 048
     Dates: start: 201002, end: 2011
  4. REVLIMID [Suspect]
     Dosage: 11.25 MILLIGRAM
     Route: 048
     Dates: start: 201105, end: 20121203
  5. WARFARIN [Concomitant]
     Indication: PRODUCT USED FOR UNKNOWN INDICATION
     Dosage: 4 MILLIGRAM
     Route: 065
  6. NPH INSULIN [Concomitant]
     Indication: PRODUCT USED FOR UNKNOWN INDICATION
     Dosage: 50 UNITS
     Route: 065
  7. EFFEXOR [Concomitant]
     Indication: PRODUCT USED FOR UNKNOWN INDICATION
     Dosage: 75 MILLIGRAM
     Route: 065
  8. POTASSIUM [Concomitant]
     Indication: PRODUCT USED FOR UNKNOWN INDICATION
     Route: 065
  9. LASIX [Concomitant]
     Indication: LOCAL SWELLING
     Dosage: 20 MILLIGRAM
     Route: 065
  10. PRINIVIL [Concomitant]
     Indication: PRODUCT USED FOR UNKNOWN INDICATION
     Route: 065
  11. FLEXERIL [Concomitant]
     Indication: PRODUCT USED FOR UNKNOWN INDICATION
     Route: 065
  12. VENTOLIN [Concomitant]
     Indication: PRODUCT USED FOR UNKNOWN INDICATION
     Route: 065
  13. PACKED RED BLOOD CELLS [Concomitant]
     Indication: PANCYTOPENIA
     Dosage: 2 UNITS
     Route: 041
     Dates: start: 20121205, end: 20121205
  14. PLATELETS [Concomitant]
     Indication: PANCYTOPENIA
     Route: 041
     Dates: start: 20121205, end: 20121205
  15. VORICONAZOLE [Concomitant]
     Indication: PRODUCT USED FOR UNKNOWN INDICATION
     Route: 048
     Dates: start: 201212
  16. VORICONAZOLE [Concomitant]
     Route: 048
     Dates: start: 201212
  17. METRONIDAZOLE [Concomitant]
     Indication: DIARRHOEA
     Route: 048
     Dates: start: 201212
  18. METOPROLOL [Concomitant]
     Indication: PRODUCT USED FOR UNKNOWN INDICATION
     Dosage: 100 MILLIGRAM
     Route: 041
     Dates: start: 20121206
  19. METOPROLOL [Concomitant]
     Dosage: 25 MILLIGRAM
     Route: 041
     Dates: start: 201212
  20. VELCADE [Concomitant]
     Indication: PLASMA CELL MYELOMA
     Route: 065
     Dates: end: 201106
  21. VELCADE [Concomitant]
     Route: 041
  22. ZOMETA [Concomitant]
     Indication: DIARRHOEA
     Route: 065
     Dates: end: 2011
  23. ZOMETA [Concomitant]
     Route: 065
     Dates: start: 201201
  24. AZITHROMYCIN [Concomitant]
     Indication: COUGH
     Route: 048
     Dates: start: 201212
  25. CEFZIL [Concomitant]
     Indication: COUGH
     Route: 048
     Dates: start: 201212
  26. LORTAB [Concomitant]
     Indication: PRODUCT USED FOR UNKNOWN INDICATION
     Dosage: 7.5/500MG
     Route: 065
  27. LOMOTIL [Concomitant]
     Indication: PRODUCT USED FOR UNKNOWN INDICATION
     Route: 065
  28. DEXAMETHASONE [Concomitant]
     Indication: PLASMA CELL MYELOMA
     Dosage: 40 MILLIGRAM
     Route: 065
     Dates: start: 20121206
  29. DEXAMETHASONE [Concomitant]
     Dosage: 20 MILLIGRAM
     Route: 065
     Dates: start: 201212

REACTIONS (5)
  - Acute lymphocytic leukaemia [Not Recovered/Not Resolved]
  - Pneumonia [Unknown]
  - Rash [Unknown]
  - Clostridium difficile colitis [Unknown]
  - Atrial fibrillation [Unknown]
